FAERS Safety Report 23712836 (Version 1)
Quarter: 2024Q2

REPORT INFORMATION
  Report Type: Spontaneous
  Country: US (occurrence: None)
  Receive Date: 20240405
  Receipt Date: 20240405
  Transmission Date: 20240716
  Serious: Yes (Death)
  Sender: FDA-Public Use
  Company Number: None

PATIENT
  Age: 73 Year
  Sex: Male

DRUGS (9)
  1. ETRAVIRINE [Suspect]
     Active Substance: ETRAVIRINE
     Indication: HIV infection
     Dosage: 200MG BID ORAL?
     Route: 048
  2. ATORVASTATIN [Concomitant]
  3. DARUNAVIR [Concomitant]
  4. RITONAVIR [Concomitant]
     Active Substance: RITONAVIR
  5. ISENTRESS [Concomitant]
     Active Substance: RALTEGRAVIR POTASSIUM
  6. METFORMIN [Concomitant]
  7. NIACIN [Concomitant]
  8. Lantus solastar [Concomitant]
  9. FOLIC ACID [Concomitant]

REACTIONS (1)
  - Cardiac arrest [None]

NARRATIVE: CASE EVENT DATE: 20240401
